FAERS Safety Report 13106434 (Version 1)
Quarter: 2017Q1

REPORT INFORMATION
  Report Type: Spontaneous
  Country: US (occurrence: US)
  Receive Date: 20170111
  Receipt Date: 20170111
  Transmission Date: 20170428
  Serious: Yes (Death, Hospitalization, Other)
  Sender: FDA-Public Use
  Company Number: US-JNJFOC-20170107975

PATIENT
  Age: 21 Year
  Sex: Male

DRUGS (22)
  1. TOBRAMYCIN. [Suspect]
     Active Substance: TOBRAMYCIN
     Indication: PSEUDOMONAS INFECTION
     Route: 065
     Dates: start: 200004
  2. IMIPENEM [Suspect]
     Active Substance: IMIPENEM
     Indication: ASPERGILLUS INFECTION
     Route: 065
     Dates: start: 200006
  3. TOBRAMYCIN. [Suspect]
     Active Substance: TOBRAMYCIN
     Indication: ASPERGILLUS INFECTION
     Route: 065
     Dates: start: 200006
  4. CIPROFLOXACIN. [Suspect]
     Active Substance: CIPROFLOXACIN
     Indication: ASPERGILLUS INFECTION
     Route: 065
     Dates: start: 200004
  5. CIPROFLOXACIN. [Suspect]
     Active Substance: CIPROFLOXACIN
     Indication: PSEUDOMONAS INFECTION
     Route: 065
     Dates: start: 200004
  6. COLISTIN [Suspect]
     Active Substance: COLISTIN
     Indication: ASPERGILLUS INFECTION
     Route: 065
     Dates: start: 200006
  7. TOBRAMYCIN. [Suspect]
     Active Substance: TOBRAMYCIN
     Indication: ASPERGILLUS INFECTION
     Route: 065
     Dates: start: 200003
  8. TOBRAMYCIN. [Suspect]
     Active Substance: TOBRAMYCIN
     Indication: PSEUDOMONAS INFECTION
     Route: 065
     Dates: start: 200003
  9. IMIPENEM [Suspect]
     Active Substance: IMIPENEM
     Indication: ASPERGILLUS INFECTION
     Route: 065
     Dates: start: 199908
  10. ITRACONAZOLE. [Suspect]
     Active Substance: ITRACONAZOLE
     Indication: ASPERGILLUS INFECTION
     Route: 065
     Dates: start: 200006, end: 2000
  11. ITRACONAZOLE. [Suspect]
     Active Substance: ITRACONAZOLE
     Indication: ASPERGILLUS INFECTION
     Route: 065
     Dates: start: 200009
  12. TOBRAMYCIN. [Suspect]
     Active Substance: TOBRAMYCIN
     Indication: ASPERGILLUS INFECTION
     Route: 065
     Dates: start: 200004
  13. TOBRAMYCIN. [Suspect]
     Active Substance: TOBRAMYCIN
     Indication: PSEUDOMONAS INFECTION
     Route: 065
     Dates: start: 200006
  14. ITRACONAZOLE. [Suspect]
     Active Substance: ITRACONAZOLE
     Indication: PSEUDOMONAS INFECTION
     Route: 065
     Dates: start: 200006, end: 2000
  15. CIPROFLOXACIN. [Suspect]
     Active Substance: CIPROFLOXACIN
     Indication: ASPERGILLUS INFECTION
     Route: 065
     Dates: start: 200006
  16. IMIPENEM [Suspect]
     Active Substance: IMIPENEM
     Indication: PSEUDOMONAS INFECTION
     Route: 065
     Dates: start: 199908
  17. IMIPENEM [Suspect]
     Active Substance: IMIPENEM
     Indication: PSEUDOMONAS INFECTION
     Route: 065
     Dates: start: 200006
  18. CIPROFLOXACIN. [Suspect]
     Active Substance: CIPROFLOXACIN
     Indication: PSEUDOMONAS INFECTION
     Route: 065
     Dates: start: 200006
  19. TOBRAMYCIN. [Suspect]
     Active Substance: TOBRAMYCIN
     Indication: ASPERGILLUS INFECTION
     Route: 065
  20. ITRACONAZOLE. [Suspect]
     Active Substance: ITRACONAZOLE
     Indication: PSEUDOMONAS INFECTION
     Route: 065
     Dates: start: 200009
  21. COLISTIN [Suspect]
     Active Substance: COLISTIN
     Indication: PSEUDOMONAS INFECTION
     Route: 065
     Dates: start: 200006
  22. TOBRAMYCIN. [Suspect]
     Active Substance: TOBRAMYCIN
     Indication: PSEUDOMONAS INFECTION
     Route: 065

REACTIONS (2)
  - Sepsis [Fatal]
  - Renal failure [Fatal]
